FAERS Safety Report 21559642 (Version 1)
Quarter: 2022Q4

REPORT INFORMATION
  Report Type: Spontaneous
  Country: US (occurrence: None)
  Receive Date: 20221106
  Receipt Date: 20221106
  Transmission Date: 20230113
  Serious: Yes (Hospitalization, Other)
  Sender: FDA-Public Use
  Company Number: None

PATIENT
  Age: 72 Year
  Sex: Male
  Weight: 60.9 kg

DRUGS (4)
  1. BEBTELOVIMAB [Suspect]
     Active Substance: BEBTELOVIMAB
     Indication: COVID-19
     Dates: start: 20220921, end: 20220921
  2. ENVARSUS XR [Concomitant]
     Active Substance: TACROLIMUS
     Dates: start: 20211031
  3. PREDNISONE [Concomitant]
     Active Substance: PREDNISONE
     Dates: start: 20211031
  4. VALCYTE [Concomitant]
     Active Substance: VALGANCICLOVIR HYDROCHLORIDE
     Dates: start: 20211031

REACTIONS (1)
  - Confusional state [None]

NARRATIVE: CASE EVENT DATE: 20220921
